FAERS Safety Report 18258557 (Version 2)
Quarter: 2020Q3

REPORT INFORMATION
  Report Type: Spontaneous
  Country: US (occurrence: US)
  Receive Date: 20200911
  Receipt Date: 20200928
  Transmission Date: 20201103
  Serious: No
  Sender: FDA-Public Use
  Company Number: US-SA-2020SA246390

PATIENT

DRUGS (1)
  1. LANTUS [Suspect]
     Active Substance: INSULIN GLARGINE
     Indication: TYPE 2 DIABETES MELLITUS
     Dosage: 5 AM + 20 PM, TWICE A DAY
     Route: 065

REACTIONS (6)
  - Inappropriate schedule of product administration [Unknown]
  - Malaise [Unknown]
  - Wrong technique in device usage process [Unknown]
  - Gait disturbance [Unknown]
  - Multiple use of single-use product [Unknown]
  - Muscular weakness [Unknown]
